FAERS Safety Report 6074205-0 (Version None)
Quarter: 2009Q1

REPORT INFORMATION
  Report Type: 
  Country: None (occurrence: None)
  Receive Date: 20090211
  Receipt Date: 20090202
  Transmission Date: 20090719
  Serious: Yes (Other)
  Sender: FDA-Public Use
  Company Number: US-AVENTIS-200910886US

PATIENT
  Age: 39 Year
  Sex: Male
  Weight: 63.81 kg

DRUGS (24)
  1. LOVENOX [Suspect]
     Indication: THROMBOSIS PROPHYLAXIS
     Dates: start: 20090101, end: 20090202
  2. ZOFRAN [Concomitant]
     Dosage: DOSE: UNK
  3. PEPCID [Concomitant]
     Dosage: DOSE: UNK
  4. PHENERGAN [Concomitant]
     Dosage: DOSE: UNK
  5. PROTONIX [Concomitant]
     Dosage: DOSE: UNK
  6. KEPPRA [Concomitant]
     Dosage: DOSE: UNK
  7. DEXTROSE [Concomitant]
     Dosage: DOSE: UNK
  8. REGULAR INSULIN [Concomitant]
     Dosage: DOSE: UNK
  9. CALCIUM GLUCONATE [Concomitant]
     Dosage: DOSE: UNK
  10. DURABAC [Concomitant]
     Dosage: DOSE: UNK
  11. VITAMIN K [Concomitant]
     Dosage: DOSE: UNK
  12. VANCOMYCIN [Concomitant]
     Dosage: DOSE: UNK
  13. LASIX [Concomitant]
     Dosage: DOSE: UNK
  14. ALBUMIN (HUMAN) [Concomitant]
     Dosage: DOSE: UNK
  15. MAGNESIUM SULFATE [Concomitant]
     Dosage: DOSE: UNK
  16. DOPAMINE HCL [Concomitant]
     Dosage: DOSE: UNK
  17. LANOXIN [Concomitant]
     Dosage: DOSE: UNK
  18. FLAGYL [Concomitant]
     Dosage: DOSE: UNK
  19. LEVOPHED [Concomitant]
     Dosage: DOSE: UNK
  20. INSULIN DRIP [Concomitant]
     Dosage: DOSE: UNK
     Route: 042
  21. MAGNESIUM SULFATE [Concomitant]
     Dosage: DOSE: UNK
  22. POTASSIUM CHLORIDE [Concomitant]
     Dosage: DOSE: UNK
  23. LANTUS [Concomitant]
     Dosage: DOSE: UNK
     Route: 058
  24. UNKNOWN DRUG [Concomitant]
     Dosage: DOSE: UNK

REACTIONS (2)
  - MULTI-ORGAN FAILURE [None]
  - THROMBOCYTOPENIA [None]
